FAERS Safety Report 15498671 (Version 3)
Quarter: 2018Q4

REPORT INFORMATION
  Report Type: Spontaneous
  Country: US (occurrence: US)
  Receive Date: 20181015
  Receipt Date: 20181105
  Transmission Date: 20190205
  Serious: Yes (Death, Hospitalization)
  Sender: FDA-Public Use
  Company Number: US-FRESENIUS MEDICAL CARE RENAL THERAPIES GROUP-FMC-1810-001813

PATIENT
  Age: 53 Year
  Sex: Male
  Weight: 96 kg

DRUGS (1)
  1. DELFLEX [Suspect]
     Active Substance: CALCIUM CHLORIDE\DEXTROSE\MAGNESIUM CHLORIDE\SODIUM CHLORIDE\SODIUM LACTATE
     Indication: END STAGE RENAL DISEASE
     Dosage: TREATMENT REGIMEN INCLUDED SIX EXCHANGES OF UNKNOWN VOLUME.
     Route: 033

REACTIONS (5)
  - Sepsis [Fatal]
  - Product dose omission [Unknown]
  - Blood pressure decreased [Recovered/Resolved]
  - Cardiac arrest [Fatal]
  - Fluid imbalance [Recovered/Resolved]

NARRATIVE: CASE EVENT DATE: 20181010
